FAERS Safety Report 13532462 (Version 5)
Quarter: 2020Q3

REPORT INFORMATION
  Report Type: Report from Study
  Country: KR (occurrence: KR)
  Receive Date: 20170510
  Receipt Date: 20171207
  Transmission Date: 20201104
  Serious: Yes (Death, Hospitalization)
  Sender: FDA-Public Use
  Company Number: KR-PFIZER INC-2017199200

PATIENT
  Age: 82 Year
  Sex: Male

DRUGS (11)
  1. ETOPOSIDE. [Suspect]
     Active Substance: ETOPOSIDE
     Indication: SMALL CELL LUNG CANCER
     Dosage: 100 MG/M2, UNK
     Route: 041
     Dates: start: 20170419, end: 20170419
  2. ETOPOSIDE. [Suspect]
     Active Substance: ETOPOSIDE
     Dosage: 100 MG/M2, UNK
     Route: 041
     Dates: start: 20170420, end: 20170420
  3. ETOPOSIDE. [Suspect]
     Active Substance: ETOPOSIDE
     Dosage: 100 MG/M2, UNK
     Route: 041
     Dates: start: 20170421, end: 20170421
  4. APETROL [Concomitant]
     Indication: DECREASED APPETITE
     Dosage: 5.2 ML, 1X/DAY
     Route: 048
     Dates: start: 20170412, end: 20170427
  5. ERDOLANT [Concomitant]
     Indication: PRODUCTIVE COUGH
     Dosage: 300 MG, 3X/DAY
     Route: 048
     Dates: start: 20170317, end: 20170427
  6. MEDI4736 [Suspect]
     Active Substance: DURVALUMAB
     Indication: SMALL CELL LUNG CANCER
     Dosage: 1500 MG, ONCE EVERY 4 WEEKS
     Route: 041
     Dates: start: 20170419, end: 20170419
  7. SODIUM CHLORIDE. [Concomitant]
     Active Substance: SODIUM CHLORIDE
     Indication: DECREASED APPETITE
     Dosage: 500.0ML CONTINUOUSLY
     Route: 042
     Dates: start: 20170412, end: 20170412
  8. CARBOPLATIN. [Suspect]
     Active Substance: CARBOPLATIN
     Indication: SMALL CELL LUNG CANCER
     Dosage: 5 AUC
     Route: 041
     Dates: start: 20170419, end: 20170419
  9. TREMELIMUMAB. [Suspect]
     Active Substance: TREMELIMUMAB
     Indication: SMALL CELL LUNG CANCER
     Dosage: 75 MG, ONCE EVERY 4 WEEKS
     Route: 041
     Dates: start: 20170419, end: 20170419
  10. COUGH NOS [Concomitant]
     Active Substance: DEXTROMETHORPHAN HYDROBROMIDE OR DEXTROMETHORPHAN HYDROBROMIDE\DOXYLAMINE SUCCINATE OR DEXTROMETHORPHAN HYDROBROMIDE\GUAIFENESIN OR GUAIFENESIN
     Indication: PRODUCTIVE COUGH
     Dosage: 2 DF, 3X/DAY
     Route: 048
     Dates: start: 20170317, end: 20170427
  11. FREAMINE III NOS [Concomitant]
     Active Substance: AMINO ACIDS
     Indication: DECREASED APPETITE
     Dosage: 500.0ML CONTINUOUSLY
     Route: 042
     Dates: start: 20170412, end: 20170412

REACTIONS (2)
  - Febrile neutropenia [Fatal]
  - Muscular weakness [Not Recovered/Not Resolved]

NARRATIVE: CASE EVENT DATE: 20170426
